FAERS Safety Report 14348744 (Version 2)
Quarter: 2018Q2

REPORT INFORMATION
  Report Type: Spontaneous
  Country: ES (occurrence: ES)
  Receive Date: 20180104
  Receipt Date: 20180518
  Transmission Date: 20180711
  Serious: Yes (Life-Threatening, Hospitalization, Other)
  Sender: FDA-Public Use
  Company Number: ES-SUN PHARMACEUTICAL INDUSTRIES LTD-2017RR-158727

PATIENT
  Age: 24 Year
  Sex: Female

DRUGS (4)
  1. QUETIAPINE. [Suspect]
     Active Substance: QUETIAPINE
     Indication: PERSONALITY DISORDER
     Dosage: UNK
     Route: 065
  2. CLORAZEPATE [Suspect]
     Active Substance: CLORAZEPATE DIPOTASSIUM
     Indication: PERSONALITY DISORDER
     Dosage: ()
     Route: 065
  3. DULOXETINE. [Suspect]
     Active Substance: DULOXETINE
     Indication: PERSONALITY DISORDER
     Dosage: UNK
     Route: 065
  4. TOPIRAMATE. [Suspect]
     Active Substance: TOPIRAMATE
     Indication: PERSONALITY DISORDER
     Dosage: UNK
     Route: 065

REACTIONS (4)
  - Loss of consciousness [Recovering/Resolving]
  - Intentional overdose [Recovering/Resolving]
  - Coma blister [Recovered/Resolved]
  - Blood creatine phosphokinase increased [Unknown]
